FAERS Safety Report 11678925 (Version 15)
Quarter: 2016Q1

REPORT INFORMATION
  Report Type: Spontaneous
  Country: US (occurrence: US)
  Receive Date: 20151028
  Receipt Date: 20160304
  Transmission Date: 20160525
  Serious: Yes (Hospitalization, Other)
  Sender: FDA-Public Use
  Company Number: US-GLAXOSMITHKLINE-US2015GSK154258

PATIENT
  Age: 71 Year
  Sex: Female

DRUGS (11)
  1. FLOLAN [Suspect]
     Active Substance: EPOPROSTENOL SODIUM
     Dosage: 12 NG/KG/MIN (CONCENTRATION 30,000 NG/ML, PUMP RATE 48 ML/DAY, VIAL STRENGTH 1.5 MG), CO
     Route: 042
  2. OPSUMIT [Suspect]
     Active Substance: MACITENTAN
     Indication: PRODUCT USED FOR UNKNOWN INDICATION
     Dosage: UNK
  3. TYVASO [Concomitant]
     Active Substance: TREPROSTINIL
     Indication: PRODUCT USED FOR UNKNOWN INDICATION
     Dosage: UNK
  4. FLOLAN [Suspect]
     Active Substance: EPOPROSTENOL SODIUM
     Indication: PULMONARY ARTERIAL HYPERTENSION
     Dosage: 12.5 DF, CO
     Route: 042
  5. FLOLAN [Suspect]
     Active Substance: EPOPROSTENOL SODIUM
     Dosage: 12 NG/KG/MIN (CONCENTRATION 30,000 NG/ML, PUMP RATE 50 ML/DAY, VIAL STRENGTH 1.5 MG, CO
     Route: 042
     Dates: start: 20151105
  6. FLOLAN [Suspect]
     Active Substance: EPOPROSTENOL SODIUM
     Dosage: 10 NG/KG/MIN CO
     Dates: start: 201510
  7. FLOLAN [Suspect]
     Active Substance: EPOPROSTENOL SODIUM
     Dosage: 8 NG/KG/MIN CO
  8. FLOLAN [Suspect]
     Active Substance: EPOPROSTENOL SODIUM
     Dosage: 12NG/KG/MIN (CONCENTRATION 30,000 NG/ML, PUMP RATE 50 ML/DAY, VIAL STRENGTH 1.5 MG, CO
     Route: 042
  9. WARFARIN [Concomitant]
     Active Substance: WARFARIN
     Indication: PRODUCT USED FOR UNKNOWN INDICATION
     Dosage: UNK
  10. FLOLAN [Suspect]
     Active Substance: EPOPROSTENOL SODIUM
     Dosage: 12 NG/KG/MIN, CO
  11. ADEMPAS [Concomitant]
     Active Substance: RIOCIGUAT

REACTIONS (28)
  - Endotracheal intubation [Unknown]
  - Cough [Not Recovered/Not Resolved]
  - Red blood cell count decreased [Unknown]
  - Hypotension [Unknown]
  - Terminal state [Unknown]
  - International normalised ratio increased [Unknown]
  - Pulmonary arterial pressure increased [Unknown]
  - Drug dose omission [Unknown]
  - Nausea [Unknown]
  - Acute respiratory failure [Unknown]
  - Oxygen saturation decreased [Not Recovered/Not Resolved]
  - Dysphagia [Unknown]
  - Dyspnoea [Unknown]
  - Migraine [Unknown]
  - Drug ineffective [Unknown]
  - Chest pain [Unknown]
  - Vomiting [Unknown]
  - Respiratory disorder [Unknown]
  - Pain in jaw [Unknown]
  - Influenza like illness [Not Recovered/Not Resolved]
  - Retching [Not Recovered/Not Resolved]
  - Circumstance or information capable of leading to medication error [Unknown]
  - Complication associated with device [Unknown]
  - Hospitalisation [Not Recovered/Not Resolved]
  - Headache [Not Recovered/Not Resolved]
  - Asthenia [Unknown]
  - Respiration abnormal [Unknown]
  - Anaemia [Unknown]

NARRATIVE: CASE EVENT DATE: 20151023
